FAERS Safety Report 6333203-X (Version None)
Quarter: 2009Q3

REPORT INFORMATION
  Report Type: 
  Country: None (occurrence: None)
  Receive Date: 20090828
  Receipt Date: 20090824
  Transmission Date: 20100115
  Serious: Yes (Hospitalization, Other)
  Sender: FDA-Public Use
  Company Number: US-TEVA-207109USA

PATIENT
  Age: 35 Year
  Sex: Male

DRUGS (3)
  1. IFOSFAMIDE INJECTION, 50 MG/ML, PACKAGED IN 1 GR/20 ML AND 3 GR/60 ML [Suspect]
     Indication: METASTASES TO MENINGES
     Dosage: 1500 MG/M2/DAY
  2. ETOPOSIDE [Concomitant]
     Indication: METASTASES TO MENINGES
  3. CYTARABINE [Concomitant]
     Indication: METASTASES TO MENINGES

REACTIONS (1)
  - INAPPROPRIATE ANTIDIURETIC HORMONE SECRETION [None]
